FAERS Safety Report 26066434 (Version 1)
Quarter: 2025Q4

REPORT INFORMATION
  Report Type: Spontaneous
  Country: US (occurrence: US)
  Receive Date: 20251119
  Receipt Date: 20251119
  Transmission Date: 20260118
  Serious: No
  Sender: NOVO NORDISK
  Company Number: US-NOVOPROD-1369813

PATIENT
  Age: 47 Year
  Sex: Female

DRUGS (3)
  1. NOVOLOG [Suspect]
     Active Substance: INSULIN ASPART
     Indication: Type 2 diabetes mellitus
     Dosage: UNK (SLIDING SCALE 16-20 IU, QD)
     Route: 058
     Dates: start: 20190101
  2. NOVOLOG [Suspect]
     Active Substance: INSULIN ASPART
     Dosage: UNK (SLIDING SCALE 16-20 IU, QD)
     Route: 058
     Dates: start: 20190101
  3. NOVOLOG [Suspect]
     Active Substance: INSULIN ASPART
     Dosage: UNK (SLIDING SCALE 16-20 IU, QD)
     Route: 058
     Dates: start: 20190101

REACTIONS (1)
  - Visual impairment [Not Recovered/Not Resolved]

NARRATIVE: CASE EVENT DATE: 20220601
